FAERS Safety Report 5863836-6 (Version None)
Quarter: 2008Q3

REPORT INFORMATION
  Report Type: 
  Country: None (occurrence: None)
  Receive Date: 20080827
  Receipt Date: 20080812
  Transmission Date: 20090109
  Serious: Yes (Life-Threatening, Hospitalization)
  Sender: FDA-Public Use
  Company Number: 2008S1000212

PATIENT
  Age: 47 Year
  Sex: Male
  Weight: 93 kg

DRUGS (2)
  1. CUBICIN [Suspect]
     Indication: STAPHYLOCOCCAL BACTERAEMIA
     Dosage: 500 MG; X1; IV
     Route: 042
     Dates: start: 20080618, end: 20080618
  2. NAFCILLIN SODIUM [Concomitant]

REACTIONS (11)
  - ACUTE RESPIRATORY FAILURE [None]
  - ANAL PRURITUS [None]
  - ANORECTAL DISCOMFORT [None]
  - CYANOSIS [None]
  - DYSPNOEA [None]
  - FOAMING AT MOUTH [None]
  - HYPOTENSION [None]
  - INFUSION RELATED REACTION [None]
  - LUNG INFILTRATION [None]
  - ORAL PRURITUS [None]
  - OXYGEN SATURATION DECREASED [None]
